FAERS Safety Report 6313595-8 (Version None)
Quarter: 2009Q3

REPORT INFORMATION
  Report Type: 
  Country: None (occurrence: None)
  Receive Date: 20090814
  Receipt Date: 20090730
  Transmission Date: 20100115
  Serious: Yes (Hospitalization)
  Sender: FDA-Public Use
  Company Number: 8048325

PATIENT
  Age: 50 Year
  Sex: Male
  Weight: 96 kg

DRUGS (4)
  1. CDP870 [Suspect]
     Indication: CROHN'S DISEASE
     Dosage: 400 MG 1/2W SC
     Route: 058
     Dates: start: 20041108, end: 20041207
  2. CDP870 [Suspect]
     Indication: CROHN'S DISEASE
     Dosage: 400 MG /M SC
     Route: 058
     Dates: start: 20050103, end: 20050421
  3. CDP870 [Suspect]
     Indication: CROHN'S DISEASE
     Dosage: 400 MG /M SC
     Route: 058
     Dates: start: 20050510
  4. SALOFALK  /00747601/ [Concomitant]

REACTIONS (2)
  - ARTHRALGIA [None]
  - SYNOVITIS [None]
